FAERS Safety Report 11453913 (Version 1)
Quarter: 2015Q3

REPORT INFORMATION
  Report Type: Report from Study
  Country: CO (occurrence: CO)
  Receive Date: 20150903
  Receipt Date: 20150903
  Transmission Date: 20151125
  Serious: Yes (Hospitalization)
  Sender: FDA-Public Use
  Company Number: PHHY2015CO031404

PATIENT
  Sex: Female
  Weight: 64 kg

DRUGS (4)
  1. LOSARTAN. [Concomitant]
     Active Substance: LOSARTAN
     Indication: HYPERTENSION
     Dosage: 1 DF, QD
     Route: 065
  2. AFINITOR [Suspect]
     Active Substance: EVEROLIMUS
     Indication: PRODUCT USED FOR UNKNOWN INDICATION
     Dosage: 1 DF, Q72H
     Route: 065
     Dates: start: 201412
  3. AFINITOR [Suspect]
     Active Substance: EVEROLIMUS
     Dosage: UNK
     Route: 065
     Dates: start: 201506
  4. TINIDAZOL [Concomitant]
     Indication: PRODUCT USED FOR UNKNOWN INDICATION
     Dosage: 1 DF, QD
     Route: 065

REACTIONS (8)
  - Oral pain [Recovered/Resolved]
  - Choking sensation [Unknown]
  - Acne [Recovered/Resolved]
  - Cough [Not Recovered/Not Resolved]
  - Stomatitis [Unknown]
  - Oropharyngeal pain [Recovered/Resolved]
  - Influenza [Not Recovered/Not Resolved]
  - Blood glucose increased [Unknown]
